FAERS Safety Report 15253269 (Version 1)
Quarter: 2018Q3

REPORT INFORMATION
  Report Type: Spontaneous
  Country: US (occurrence: US)
  Receive Date: 20180807
  Receipt Date: 20180807
  Transmission Date: 20181010
  Serious: No
  Sender: FDA-Public Use
  Company Number: US-TEIKOKU PHARMA USA-TPU2018-00447

PATIENT
  Sex: Female
  Weight: 52.21 kg

DRUGS (17)
  1. GENERIC COMPLETE WOMEN UNDER 50 MULTIVITAMINS [Concomitant]
     Indication: ROUTINE HEALTH MAINTENANCE
     Dates: start: 2010
  2. OCREVIS [Concomitant]
     Indication: MULTIPLE SCLEROSIS
     Route: 044
     Dates: start: 201712
  3. FLUOXETINE [Concomitant]
     Active Substance: FLUOXETINE HYDROCHLORIDE
     Indication: DEPRESSION
     Dates: start: 2010
  4. HYDROCODONE BITARTRATE AND ACETAMINOPHEN [Concomitant]
     Active Substance: ACETAMINOPHEN\HYDROCODONE BITARTRATE
     Dosage: TAKE 1?2 TABLETS EVERY 6 HOURS AS NEEDED. DESCRIPTION : WHITE PILL WITH A LINE ON IT AND M367
  5. MEFENAMIC ACID. [Concomitant]
     Active Substance: MEFENAMIC ACID
     Indication: BACK PAIN
     Route: 048
     Dates: start: 201801
  6. SENNAKOT [Concomitant]
     Indication: LAXATIVE SUPPORTIVE CARE
     Dosage: 1 TABLET IN THE MORNING AND 1 TABLET IN THE EVENING
     Dates: start: 2010
  7. LIDODERM [Suspect]
     Active Substance: LIDOCAINE
     Indication: SPINAL DISORDER
     Route: 061
  8. NITROFURANTOIN MACROCRYSTALS [Concomitant]
     Active Substance: NITROFURANTOIN
     Indication: CYSTITIS
     Dates: start: 2016
  9. ASPIRIN. [Concomitant]
     Active Substance: ASPIRIN
     Indication: ANTICOAGULANT THERAPY
     Dates: start: 20100524
  10. LIDODERM [Suspect]
     Active Substance: LIDOCAINE
     Indication: OSTEOPOROSIS
  11. HYDROCODONE BITARTRATE AND ACETAMINOPHEN [Concomitant]
     Active Substance: ACETAMINOPHEN\HYDROCODONE BITARTRATE
     Indication: BACK PAIN
     Dosage: SMALLER DOSE
     Dates: start: 2010
  12. MECLIZINE HCL [Concomitant]
     Active Substance: MECLIZINE HYDROCHLORIDE
     Indication: VERTIGO
     Dates: start: 2010
  13. VITAMIN D3 [Concomitant]
     Active Substance: CHOLECALCIFEROL
     Indication: ROUTINE HEALTH MAINTENANCE
     Dates: start: 2010
  14. GABAPENTIN. [Concomitant]
     Active Substance: GABAPENTIN
     Indication: PAIN OF SKIN
  15. ALENDRONATE [Concomitant]
     Active Substance: ALENDRONATE SODIUM
     Indication: OSTEOPOROSIS
  16. BACLOFEN. [Concomitant]
     Active Substance: BACLOFEN
     Indication: MUSCLE SPASMS
     Dosage: 1 TABLET BY MOUTH IN THE MORNING AND 3 TABLETS AT BEDTIME AND 1 TABLET AS NEEDED
     Route: 048
     Dates: start: 2010
  17. CLONAZEPAM. [Concomitant]
     Active Substance: CLONAZEPAM
     Indication: ANXIETY
     Dosage: 1 TABLET BY MOUTH AT BEDTIME AND 1/2 TABLET TWICE A DAY
     Route: 048

REACTIONS (2)
  - Disease progression [Not Recovered/Not Resolved]
  - Wrong technique in product usage process [Unknown]
